FAERS Safety Report 16473723 (Version 1)
Quarter: 2019Q2

REPORT INFORMATION
  Report Type: Spontaneous
  Country: FR (occurrence: FR)
  Receive Date: 20190625
  Receipt Date: 20190625
  Transmission Date: 20190711
  Serious: Yes (Other)
  Sender: FDA-Public Use
  Company Number: FR-PFIZER INC-2019264215

PATIENT
  Sex: Female

DRUGS (1)
  1. MEDROL [Suspect]
     Active Substance: METHYLPREDNISOLONE
     Dosage: 16 MG, UNK

REACTIONS (6)
  - Depression [Unknown]
  - Headache [Unknown]
  - Abdominal pain upper [Unknown]
  - Abdominal pain [Unknown]
  - Suicidal behaviour [Unknown]
  - Malaise [Unknown]
